FAERS Safety Report 9013409 (Version 1)
Quarter: 2013Q1

REPORT INFORMATION
  Report Type: Spontaneous
  Country: US (occurrence: None)
  Receive Date: 20130107
  Receipt Date: 20130107
  Transmission Date: 20140127
  Serious: Yes (Death)
  Sender: FDA-Public Use
  Company Number: None

PATIENT
  Age: 56 Year
  Sex: 0
  Weight: 53.2 kg

DRUGS (2)
  1. CLOFARABINE [Suspect]
     Indication: ACUTE MYELOID LEUKAEMIA
     Dosage: 66MG QD X 5 DOSES
     Dates: start: 20121017, end: 20121021
  2. BUSULFAN [Suspect]
     Indication: ACUTE MYELOID LEUKAEMIA
     Dosage: 290 MG
     Dates: start: 20121018, end: 20121021

REACTIONS (4)
  - Pneumonia [None]
  - Heart rate increased [None]
  - Respiratory failure [None]
  - Sepsis [None]
